FAERS Safety Report 5782770-3 (Version None)
Quarter: 2008Q2

REPORT INFORMATION
  Report Type: 
  Country: None (occurrence: None)
  Receive Date: 20080624
  Receipt Date: 20080312
  Transmission Date: 20081010
  Serious: No
  Sender: FDA-Public Use
  Company Number: US-BAYER-200817134NA

PATIENT
  Age: 38 Year
  Sex: Female
  Weight: 58 kg

DRUGS (5)
  1. CLIMARA [Suspect]
     Indication: HORMONE LEVEL ABNORMAL
     Dosage: TOTAL DAILY DOSE: 0.05 MG  UNIT DOSE: 0.05 MG
     Route: 062
  2. ALAVERT [Concomitant]
     Indication: MULTIPLE ALLERGIES
  3. CELEXA [Concomitant]
     Indication: DEPRESSION
  4. XANAX [Concomitant]
     Indication: TREMOR
  5. MULTI-VITAMIN [Concomitant]

REACTIONS (5)
  - ACNE [None]
  - HORMONE LEVEL ABNORMAL [None]
  - INSOMNIA [None]
  - PHARMACEUTICAL PRODUCT COMPLAINT [None]
  - TREMOR [None]
